FAERS Safety Report 20559116 (Version 1)
Quarter: 2022Q1

REPORT INFORMATION
  Report Type: Spontaneous
  Country: US (occurrence: US)
  Receive Date: 20220307
  Receipt Date: 20220307
  Transmission Date: 20220423
  Serious: No
  Sender: FDA-Public Use
  Company Number: US-PFIZER INC-202200309697

PATIENT
  Age: 45 Year
  Sex: Female

DRUGS (1)
  1. XELJANZ [Suspect]
     Active Substance: TOFACITINIB CITRATE
     Dosage: 5 MG, 1X/DAY
     Dates: start: 20210701

REACTIONS (7)
  - Headache [Unknown]
  - Fatigue [Unknown]
  - Asthenia [Unknown]
  - COVID-19 [Unknown]
  - Laboratory test abnormal [Unknown]
  - Liver function test abnormal [Unknown]
  - Off label use [Unknown]
